FAERS Safety Report 21074173 (Version 1)
Quarter: 2022Q3

REPORT INFORMATION
  Report Type: Spontaneous
  Country: US (occurrence: US)
  Receive Date: 20220713
  Receipt Date: 20220713
  Transmission Date: 20221027
  Serious: No
  Sender: FDA-Public Use
  Company Number: US-009507513-2206USA005619

PATIENT
  Age: 40 Year
  Sex: Female

DRUGS (4)
  1. INVANZ [Suspect]
     Active Substance: ERTAPENEM SODIUM
     Indication: Appendicitis
     Dosage: 1 GRAM
     Route: 042
  2. INVANZ [Suspect]
     Active Substance: ERTAPENEM SODIUM
     Indication: Appendicolith
  3. CEFAZOLIN [Concomitant]
     Active Substance: CEFAZOLIN
     Indication: Appendicitis
     Dosage: 2 GRAM
     Route: 042
  4. CEFAZOLIN [Concomitant]
     Active Substance: CEFAZOLIN
     Indication: Appendicolith

REACTIONS (1)
  - Product use in unapproved indication [Unknown]
